FAERS Safety Report 16234554 (Version 2)
Quarter: 2019Q2

REPORT INFORMATION
  Report Type: Spontaneous
  Country: CH (occurrence: CH)
  Receive Date: 20190424
  Receipt Date: 20190524
  Transmission Date: 20190711
  Serious: Yes (Hospitalization, Other)
  Sender: FDA-Public Use
  Company Number: CH-PFIZER INC-2019164253

PATIENT
  Age: 76 Year
  Sex: Female
  Weight: 90 kg

DRUGS (11)
  1. XELJANZ [Suspect]
     Active Substance: TOFACITINIB CITRATE
     Indication: RHEUMATOID ARTHRITIS
     Dosage: 5 MG, 1X/DAY
  2. NEBIVOLOL ACTAVIS [Concomitant]
     Active Substance: NEBIVOLOL
     Dosage: 5 MG, 1X/DAY
     Dates: end: 20180925
  3. ATACAND [Concomitant]
     Active Substance: CANDESARTAN CILEXETIL
     Dosage: 8 MG, 1X/DAY
  4. BRUFEN RETARD [Concomitant]
     Active Substance: IBUPROFEN
     Dosage: 800 MG, 2X/DAY
     Dates: end: 20180925
  5. XARELTO [Concomitant]
     Active Substance: RIVAROXABAN
     Dosage: 20 MG, 1X/DAY
     Route: 048
  6. AMLODIPIN PFIZER [Concomitant]
     Active Substance: AMLODIPINE BESYLATE
     Dosage: 5 MG, UNK
     Dates: end: 20180925
  7. PREDNISON STREULI [Suspect]
     Active Substance: PREDNISONE
     Indication: RHEUMATOID ARTHRITIS
     Dosage: 5 MG, 1X/DAY
  8. SPIRONOLACTONE. [Concomitant]
     Active Substance: SPIRONOLACTONE
     Dosage: 25 MG, 1X/DAY
     Dates: end: 20180925
  9. TOREM [TORASEMIDE SODIUM] [Concomitant]
     Dosage: 10 MG, 1X/DAY
  10. CALCIMAGON D3 [Concomitant]
     Active Substance: CALCIUM\CHOLECALCIFEROL
     Dosage: UNK UNK, 1X/DAY (500/800)
  11. PANTOZOL [Concomitant]
     Active Substance: PANTOPRAZOLE SODIUM
     Dosage: 20 MG, 1X/DAY

REACTIONS (3)
  - Gastroenteritis [Recovered/Resolved]
  - Sepsis [Recovered/Resolved]
  - Adrenocortical insufficiency acute [Unknown]

NARRATIVE: CASE EVENT DATE: 20180924
